FAERS Safety Report 9229353 (Version 1)
Quarter: 2013Q2

REPORT INFORMATION
  Report Type: Spontaneous
  Country: US (occurrence: US)
  Receive Date: 20130412
  Receipt Date: 20130412
  Transmission Date: 20140414
  Serious: Yes (Hospitalization)
  Sender: FDA-Public Use
  Company Number: US-ASTELLAS-2013US000753

PATIENT
  Sex: Male
  Weight: 63 kg

DRUGS (7)
  1. PROGRAF [Suspect]
     Indication: RENAL TRANSPLANT
     Dosage: 7 MG, UID/QD
     Route: 048
     Dates: start: 20041024
  2. PROCARDIA                          /00340701/ [Concomitant]
     Indication: CHEST PAIN
     Dosage: 30 MG, BID
     Route: 048
     Dates: start: 20041024
  3. CELLCEPT                           /01275102/ [Concomitant]
     Indication: RENAL TRANSPLANT
     Dosage: 500 MG, BID
     Route: 048
     Dates: start: 20041024
  4. TAMSULOSIN [Concomitant]
     Indication: PRODUCT USED FOR UNKNOWN INDICATION
     Dosage: 0.4 MG, UID/QD
     Route: 048
     Dates: start: 20120215
  5. CLOPIDOGREL [Concomitant]
     Indication: ANTICOAGULANT THERAPY
     Dosage: 75 MG, UID/QD
     Route: 048
  6. LOSARTAN POTASSIUM [Concomitant]
     Indication: HYPERTENSION
     Dosage: UNK
     Route: 048
     Dates: start: 20041024
  7. CRESTOR [Concomitant]
     Indication: BLOOD CHOLESTEROL INCREASED
     Dosage: 10 MG, UID/QD
     Route: 048

REACTIONS (4)
  - Influenza [Recovered/Resolved]
  - Renal impairment [Recovering/Resolving]
  - Nasal congestion [Recovering/Resolving]
  - Dyspnoea [Recovering/Resolving]
